FAERS Safety Report 8393938-4 (Version None)
Quarter: 2012Q2

REPORT INFORMATION
  Report Type: 
  Country: None (occurrence: None)
  Receive Date: 20120516
  Receipt Date: 20120506
  Transmission Date: 20120825
  Serious: Yes (Hospitalization, Other)
  Sender: FDA-Public Use
  Company Number: 2012SP023754

PATIENT
  Age: 59 Year
  Sex: Female

DRUGS (3)
  1. ATENOLOL [Suspect]
     Indication: SUICIDE ATTEMPT
     Dosage: 1300 MG;PO
     Route: 048
     Dates: start: 20120501, end: 20120501
  2. FLURAZEPAM HYDROCHLORIDE [Suspect]
     Indication: SUICIDE ATTEMPT
     Dosage: 40 DF;PO
     Route: 048
     Dates: start: 20120501, end: 20120501
  3. MIRTAZAPINE [Suspect]
     Indication: SUICIDE ATTEMPT
     Dosage: 900 MG;PO
     Route: 048
     Dates: start: 20120501, end: 20120501

REACTIONS (4)
  - SOMNOLENCE [None]
  - SUICIDE ATTEMPT [None]
  - BRADYPHRENIA [None]
  - BRADYKINESIA [None]
